FAERS Safety Report 13299170 (Version 1)
Quarter: 2017Q1

REPORT INFORMATION
  Report Type: Spontaneous
  Country: FR (occurrence: FR)
  Receive Date: 20170306
  Receipt Date: 20170306
  Transmission Date: 20170428
  Serious: Yes (Hospitalization)
  Sender: FDA-Public Use
  Company Number: FR-SA-2017SA036049

PATIENT
  Age: 89 Year
  Sex: Female

DRUGS (8)
  1. STILNOX [Suspect]
     Active Substance: ZOLPIDEM TARTRATE
     Route: 048
     Dates: end: 20170119
  2. PREVISCAN [Concomitant]
     Active Substance: FLUINDIONE
     Route: 065
  3. ZYMAD [Concomitant]
     Active Substance: CHOLECALCIFEROL
     Route: 065
  4. TEMESTA [Concomitant]
     Active Substance: LORAZEPAM
     Route: 065
  5. DEPAMIDE [Suspect]
     Active Substance: VALPROMIDE
     Indication: AGGRESSION
     Dosage: FORM:GASTRO-RESISTANT FILM COATED TABLET
     Route: 048
     Dates: start: 20170111, end: 20170119
  6. CARDENSIEL [Concomitant]
     Active Substance: BISOPROLOL FUMARATE
     Route: 065
  7. DIAFUSOR [Concomitant]
     Active Substance: NITROGLYCERIN
     Route: 065
  8. PARACETAMOL [Concomitant]
     Active Substance: ACETAMINOPHEN
     Route: 065

REACTIONS (1)
  - Epilepsy [Recovered/Resolved]

NARRATIVE: CASE EVENT DATE: 20170117
